FAERS Safety Report 6253961-2 (Version None)
Quarter: 2009Q3

REPORT INFORMATION
  Report Type: 
  Country: None (occurrence: None)
  Receive Date: 20090702
  Receipt Date: 20090624
  Transmission Date: 20100115
  Serious: No
  Sender: FDA-Public Use
  Company Number: US-JNJFOC-20090609319

PATIENT
  Sex: Female
  Weight: 136.08 kg

DRUGS (11)
  1. DURAGESIC-100 [Suspect]
     Indication: FIBROMYALGIA
     Route: 062
  2. TOPAMAX [Concomitant]
     Indication: MIGRAINE
     Route: 048
  3. CLONAZEPAM [Concomitant]
     Indication: ANXIETY
     Route: 048
  4. FROVA [Concomitant]
     Indication: MIGRAINE
     Route: 048
  5. ZANAFLEX [Concomitant]
     Indication: MUSCLE SPASMS
     Route: 048
  6. PERCOCET [Concomitant]
     Indication: BREAKTHROUGH PAIN
     Route: 048
  7. LYRICA [Concomitant]
     Indication: FIBROMYALGIA
     Route: 048
  8. PHENERGAN [Concomitant]
     Indication: NAUSEA
     Route: 048
  9. DULCOLAX [Concomitant]
     Indication: CONSTIPATION
     Route: 048
  10. METAMUCIL [Concomitant]
     Indication: CONSTIPATION
     Route: 048
  11. VITAMIN D [Concomitant]
     Indication: HYPOVITAMINOSIS
     Route: 048

REACTIONS (3)
  - DERMATITIS CONTACT [None]
  - DEVICE ADHESION ISSUE [None]
  - INAPPROPRIATE SCHEDULE OF DRUG ADMINISTRATION [None]
